FAERS Safety Report 6180069-7 (Version None)
Quarter: 2009Q2

REPORT INFORMATION
  Report Type: 
  Country: None (occurrence: None)
  Receive Date: 20090501
  Receipt Date: 20090413
  Transmission Date: 20091009
  Serious: Yes (Hospitalization)
  Sender: FDA-Public Use
  Company Number: 254010

PATIENT
  Age: 50 Year
  Sex: Male

DRUGS (5)
  1. CYTARABINE [Suspect]
     Indication: ACUTE MYELOID LEUKAEMIA
     Dosage: 170 MG, INTRAVENOUS; 125 MG ( TWICE DAILY ) INTRAVENOUS
     Route: 042
     Dates: start: 20081007, end: 20081116
  2. CYTARABINE [Suspect]
     Indication: ACUTE MYELOID LEUKAEMIA
     Dosage: 170 MG, INTRAVENOUS; 125 MG ( TWICE DAILY ) INTRAVENOUS
     Route: 042
     Dates: start: 20081007, end: 20081117
  3. (ZAVEDOS) [Suspect]
     Indication: DRUG USE FOR UNKNOWN INDICATION
     Dosage: 15 MG, INTRAVENOUS
     Route: 042
     Dates: start: 20081007, end: 20081117
  4. NEULASTA [Suspect]
     Indication: PROPHYLAXIS
     Dosage: 6 MG, SUBCUTANEOUS
     Route: 058
     Dates: start: 20081007, end: 20081117
  5. AMBISOME [Concomitant]

REACTIONS (10)
  - FEBRILE NEUTROPENIA [None]
  - HAEMOGLOBIN DECREASED [None]
  - HYPOTENSION [None]
  - INFECTION [None]
  - LUNG INFECTION [None]
  - LYMPHOCYTE COUNT DECREASED [None]
  - MALAISE [None]
  - PLATELET COUNT DECREASED [None]
  - TACHYCARDIA [None]
  - WHITE BLOOD CELL COUNT DECREASED [None]
